FAERS Safety Report 16242299 (Version 1)
Quarter: 2019Q2

REPORT INFORMATION
  Report Type: Spontaneous
  Country: FR (occurrence: FR)
  Receive Date: 20190426
  Receipt Date: 20190426
  Transmission Date: 20190711
  Serious: Yes (Hospitalization)
  Sender: FDA-Public Use
  Company Number: FR-ACCORD-124288

PATIENT
  Age: 45 Year
  Sex: Female

DRUGS (3)
  1. VENLAFAXINE/VENLAFAXINE HYDROCHLORIDE [Suspect]
     Active Substance: VENLAFAXINE HYDROCHLORIDE
     Route: 048
     Dates: start: 20190113, end: 20190113
  2. QUETIAPINE. [Suspect]
     Active Substance: QUETIAPINE
     Dosage: ALSO RECEIVED 3000 MG DOSE
     Route: 048
     Dates: start: 20190113, end: 20190113
  3. CYAMEMAZINE [Suspect]
     Active Substance: CYAMEMAZINE
     Dosage: STRENGTH: 25 MG
     Route: 048
     Dates: start: 20190113, end: 20190113

REACTIONS (3)
  - Altered state of consciousness [Recovered/Resolved]
  - Toxicity to various agents [Unknown]
  - Somnolence [Recovered/Resolved]

NARRATIVE: CASE EVENT DATE: 20190113
